FAERS Safety Report 4921121-0 (Version None)
Quarter: 2006Q1

REPORT INFORMATION
  Report Type: 
  Country: None (occurrence: None)
  Receive Date: 20060223
  Receipt Date: 20050512
  Transmission Date: 20060701
  Serious: Yes (Death, Hospitalization)
  Sender: FDA-Public Use
  Company Number: US-MERCK-0505USA01679

PATIENT
  Age: 59 Year
  Sex: Female
  Weight: 67 kg

DRUGS (2)
  1. VIOXX [Suspect]
     Indication: BACK PAIN
     Route: 048
     Dates: start: 20010320, end: 20020510
  2. VIOXX [Suspect]
     Indication: MUSCLE SPASMS
     Route: 048
     Dates: start: 20010320, end: 20020510

REACTIONS (2)
  - ARTERIOSCLEROSIS [None]
  - MYOCARDIAL INFARCTION [None]
